FAERS Safety Report 20298801 (Version 3)
Quarter: 2022Q1

REPORT INFORMATION
  Report Type: Spontaneous
  Country: PL (occurrence: None)
  Receive Date: 20220105
  Receipt Date: 20220208
  Transmission Date: 20220424
  Serious: Yes (Other)
  Sender: FDA-Public Use
  Company Number: 2021A909022

PATIENT
  Age: 83 Year
  Sex: Female
  Weight: 91 kg

DRUGS (24)
  1. METOPROLOL [Suspect]
     Active Substance: METOPROLOL
     Indication: Product used for unknown indication
     Route: 065
  2. OMEPRAZOLE [Suspect]
     Active Substance: OMEPRAZOLE
     Indication: Product used for unknown indication
     Route: 048
  3. ISOSORBIDE MONONITRATE [Suspect]
     Active Substance: ISOSORBIDE MONONITRATE
     Indication: Product used for unknown indication
     Dosage: AS NECESSARY, USUALLY 1-2 X / 24 H
     Route: 065
  4. RAMIPRIL [Suspect]
     Active Substance: RAMIPRIL
     Indication: Product used for unknown indication
     Route: 065
  5. HYDROCHLOROTHIAZIDE [Suspect]
     Active Substance: HYDROCHLOROTHIAZIDE
     Indication: Product used for unknown indication
     Dosage: 1 DOSAGE FORMS DAILY
     Route: 065
  6. BETAHISTINE [Suspect]
     Active Substance: BETAHISTINE
     Indication: Product used for unknown indication
     Route: 065
  7. FUROSEMIDE [Suspect]
     Active Substance: FUROSEMIDE
     Indication: Product used for unknown indication
     Dosage: 3 DOSAGE FORMS
     Route: 048
  8. FUROSEMIDE [Suspect]
     Active Substance: FUROSEMIDE
     Indication: Product used for unknown indication
     Dosage: 1 DOSAGE FORM, QOD (3 DOSAGE FORM) (1 DOSAGE FORMS,1 IN 2 D)
     Route: 048
  9. LEVOTHYROXINE [Suspect]
     Active Substance: LEVOTHYROXINE
     Route: 065
  10. SPIRONOLACTONE [Suspect]
     Active Substance: SPIRONOLACTONE
     Indication: Product used for unknown indication
     Route: 065
  11. METOCLOPRAMIDE [Suspect]
     Active Substance: METOCLOPRAMIDE
     Indication: Product used for unknown indication
     Dosage: AS NECESSARY 2 TABLETS IN CASE OF CONSTIPATION FOR MENY MONTHS INTERMITTENT
     Route: 065
  12. ATORVASTATIN [Suspect]
     Active Substance: ATORVASTATIN
     Indication: Product used for unknown indication
     Dosage: 1 DOSAGE FORMS DAILY;
     Route: 065
  13. ACETAMINOPHEN [Suspect]
     Active Substance: ACETAMINOPHEN
     Indication: Product used for unknown indication
     Dosage: 1 DOSAGE FORMS DAILY
     Route: 065
  14. ALBUTEROL [Suspect]
     Active Substance: ALBUTEROL
     Indication: Product used for unknown indication
     Dosage: INTERMITTENT
     Route: 065
  15. ALPRAZOLAM [Suspect]
     Active Substance: ALPRAZOLAM
     Indication: Product used for unknown indication
     Route: 065
  16. DABIGATRAN [Suspect]
     Active Substance: DABIGATRAN
     Indication: Product used for unknown indication
     Route: 065
  17. ZOLPIDEM [Suspect]
     Active Substance: ZOLPIDEM TARTRATE
     Indication: Product used for unknown indication
     Dosage: 1 DOSAGE FORMS DAILY
     Route: 065
  18. ALLOPURINOL [Suspect]
     Active Substance: ALLOPURINOL
     Indication: Product used for unknown indication
     Dosage: 1 DOSAGE FORMS DAILY
     Route: 065
  19. HYDROXYZINE HYDROCHLORIDE [Suspect]
     Active Substance: HYDROXYZINE HYDROCHLORIDE
     Indication: Product used for unknown indication
     Dosage: AS NECASSARY, USUALLY 2 X /24 H
     Route: 065
  20. TRAMADOL [Suspect]
     Active Substance: TRAMADOL
     Indication: Product used for unknown indication
     Dosage: AS NECESSARY 2 TABLETS INTERMITTENT
     Route: 065
  21. CITALOPRAM [Suspect]
     Active Substance: CITALOPRAM HYDROBROMIDE
     Indication: Product used for unknown indication
     Route: 065
  22. GLICLAZIDE [Suspect]
     Active Substance: GLICLAZIDE
     Indication: Product used for unknown indication
     Dosage: 3 DOSAGE FORMS DAILY
     Route: 065
  23. DEXTROSE\NIKETHAMIDE [Suspect]
     Active Substance: DEXTROSE\NIKETHAMIDE
     Indication: Product used for unknown indication
     Route: 065
  24. POTASSIUM CHLORIDE [Suspect]
     Active Substance: POTASSIUM CHLORIDE
     Indication: Product used for unknown indication
     Route: 065

REACTIONS (25)
  - Diabetes mellitus inadequate control [Unknown]
  - Mobility decreased [Unknown]
  - Cognitive disorder [Unknown]
  - Fall [Unknown]
  - Hyponatraemia [Unknown]
  - Drug dependence [Unknown]
  - Osteoporosis [Unknown]
  - Depression [Unknown]
  - Hypotension [Unknown]
  - Arthralgia [Unknown]
  - Atrial fibrillation [Unknown]
  - Femur fracture [Unknown]
  - Type 2 diabetes mellitus [Unknown]
  - Cholecystectomy [Unknown]
  - Micturition disorder [Unknown]
  - Hypertension [Unknown]
  - Coronary artery disease [Unknown]
  - Autoimmune thyroiditis [Unknown]
  - Cardiac failure [Unknown]
  - Pancreatitis acute [Unknown]
  - Chronic kidney disease [Unknown]
  - Peptic ulcer [Unknown]
  - Deep vein thrombosis [Unknown]
  - Obesity [Unknown]
  - Gastrointestinal disorder [Unknown]
